FAERS Safety Report 8482276-7 (Version None)
Quarter: 2012Q3

REPORT INFORMATION
  Report Type: 
  Country: None (occurrence: None)
  Receive Date: 20120702
  Receipt Date: 20120629
  Transmission Date: 20120928
  Serious: Yes (Life-Threatening, Hospitalization)
  Sender: FDA-Public Use
  Company Number: PHHY2012DE055865

PATIENT

DRUGS (4)
  1. THEOPHYLLINE [Concomitant]
     Dosage: 150 MG, QD
     Route: 048
  2. CLOZAPINE [Suspect]
     Dosage: 12.5 MG, UNK
     Dates: start: 19880101
  3. CLOZAPINE [Suspect]
     Dosage: 25 MG, QD
     Dates: start: 19880101
  4. CLOZAPINE [Suspect]
     Dosage: 75 MG, QD
     Dates: start: 19880101

REACTIONS (4)
  - DYSPNOEA [None]
  - ASTHMA [None]
  - CYANOSIS [None]
  - STRIDOR [None]
